FAERS Safety Report 10509082 (Version 1)
Quarter: 2014Q3

REPORT INFORMATION
  Report Type: Spontaneous
  Country: US (occurrence: None)
  Receive Date: 20140915
  Receipt Date: 20140915
  Transmission Date: 20150326
  Serious: Yes (Other)
  Sender: FDA-Public Use
  Company Number: 2014-US-002400

PATIENT
  Age: 73 Year
  Sex: Male

DRUGS (2)
  1. XYREM [Suspect]
     Active Substance: SODIUM OXYBATE
     Indication: CATAPLEXY
     Route: 048
     Dates: start: 201312
  2. XYREM [Suspect]
     Active Substance: SODIUM OXYBATE
     Indication: NARCOLEPSY
     Route: 048
     Dates: start: 201312

REACTIONS (5)
  - Unevaluable event [None]
  - Dyspnoea [None]
  - Pollakiuria [None]
  - Prostatic disorder [None]
  - Treatment noncompliance [None]

NARRATIVE: CASE EVENT DATE: 2014
